FAERS Safety Report 9059938 (Version 1)
Quarter: 2013Q1

REPORT INFORMATION
  Report Type: Spontaneous
  Country: US (occurrence: None)
  Receive Date: 20130207
  Receipt Date: 20130207
  Transmission Date: 20140127
  Serious: Yes (Other)
  Sender: FDA-Public Use
  Company Number: None

PATIENT
  Age: 23 Year
  Sex: Female
  Weight: 81.65 kg

DRUGS (2)
  1. TRAMADOL [Suspect]
     Indication: POST-TRAUMATIC HEADACHE
     Dates: start: 20130204, end: 20130205
  2. TRAMADOL [Suspect]
     Indication: CONCUSSION
     Dates: start: 20130204, end: 20130205

REACTIONS (2)
  - Tremor [None]
  - Fear [None]
